FAERS Safety Report 14633103 (Version 5)
Quarter: 2019Q4

REPORT INFORMATION
  Report Type: Spontaneous
  Country: US (occurrence: US)
  Receive Date: 20180313
  Receipt Date: 20191031
  Transmission Date: 20200122
  Serious: Yes (Other)
  Sender: FDA-Public Use
  Company Number: US-ELI_LILLY_AND_COMPANY-US201803004317

PATIENT
  Sex: Female

DRUGS (2)
  1. CYMBALTA [Suspect]
     Active Substance: DULOXETINE HYDROCHLORIDE
     Indication: PRODUCT USED FOR UNKNOWN INDICATION
     Dosage: UNK, UNKNOWN
     Route: 065
  2. HUMIRA [Suspect]
     Active Substance: ADALIMUMAB
     Indication: PSORIASIS
     Dosage: 40 MG, ONE EVERY TWO WEEKS
     Route: 058

REACTIONS (28)
  - Thrombosis [Recovering/Resolving]
  - Sensitivity to weather change [Unknown]
  - Nervous system disorder [Unknown]
  - Weight increased [Unknown]
  - Blood calcium decreased [Unknown]
  - Arthropathy [Unknown]
  - Pain [Unknown]
  - Erythema [Unknown]
  - Diarrhoea haemorrhagic [Unknown]
  - Nausea [Unknown]
  - Full blood count decreased [Unknown]
  - Blood iron decreased [Unknown]
  - Depression [Unknown]
  - Pain in extremity [Unknown]
  - Dysstasia [Unknown]
  - Rheumatoid arthritis [Unknown]
  - Immunodeficiency [Unknown]
  - Osteoarthritis [Unknown]
  - Peripheral swelling [Unknown]
  - Lyme disease [Unknown]
  - Back pain [Unknown]
  - Abdominal pain upper [Unknown]
  - Systemic lupus erythematosus [Unknown]
  - Mobility decreased [Unknown]
  - Intervertebral disc protrusion [Unknown]
  - Spinal osteoarthritis [Unknown]
  - Psoriasis [Unknown]
  - Musculoskeletal discomfort [Unknown]

NARRATIVE: CASE EVENT DATE: 20160115
